FAERS Safety Report 4687436-9 (Version None)
Quarter: 2005Q2

REPORT INFORMATION
  Report Type: 
  Country: None (occurrence: None)
  Receive Date: 20050609
  Receipt Date: 20050609
  Transmission Date: 20051028
  Serious: Yes (Hospitalization)
  Sender: FDA-Public Use
  Company Number: None

PATIENT
  Sex: Female
  Weight: 54.1 kg

DRUGS (3)
  1. BUSULFAN [Suspect]
     Indication: LYMPHOMA
     Dosage: 180 MG DAILY INTRAVENOUS
     Route: 042
     Dates: start: 20050316, end: 20050319
  2. FLUDARABINE PHOSPHATE [Suspect]
     Indication: LYMPHOMA
     Dosage: 40 MG DAILY INTRAVENOUS
     Route: 042
     Dates: start: 20050315, end: 20050319
  3. CAMPATH [Concomitant]

REACTIONS (8)
  - ABDOMINAL PAIN [None]
  - ANOREXIA [None]
  - HAEMATURIA [None]
  - HORNER'S SYNDROME [None]
  - NAUSEA [None]
  - NEUTROPENIA [None]
  - PYREXIA [None]
  - VOMITING [None]
